FAERS Safety Report 13553844 (Version 1)
Quarter: 2017Q2

REPORT INFORMATION
  Report Type: Spontaneous
  Country: CA (occurrence: CA)
  Receive Date: 20170517
  Receipt Date: 20170517
  Transmission Date: 20170830
  Serious: Yes (Other)
  Sender: FDA-Public Use
  Company Number: CA-ORION CORPORATION ORION PHARMA-TREX2017-1431

PATIENT
  Age: 83 Year
  Sex: Female

DRUGS (4)
  1. GOLD [Concomitant]
     Active Substance: GOLD
     Route: 065
  2. METHOTREXATE. [Suspect]
     Active Substance: METHOTREXATE
     Indication: RHEUMATOID ARTHRITIS
     Dosage: 10-15 MG
     Route: 048
  3. PREDNISONE. [Concomitant]
     Active Substance: PREDNISONE
     Route: 065
  4. D-PENICILLAMINE [Concomitant]
     Active Substance: PENICILLAMINE
     Route: 065

REACTIONS (6)
  - Immunodeficiency [Unknown]
  - Lymphadenopathy [Recovered/Resolved]
  - Lymphopenia [Recovered/Resolved]
  - Adult T-cell lymphoma/leukaemia [Unknown]
  - Herpes zoster [Unknown]
  - Lymphoproliferative disorder [Recovered/Resolved]
